FAERS Safety Report 6585890-9 (Version None)
Quarter: 2010Q1

REPORT INFORMATION
  Report Type: 
  Country: None (occurrence: None)
  Receive Date: 20100217
  Receipt Date: 20100209
  Transmission Date: 20100710
  Serious: Yes (Hospitalization, Other)
  Sender: FDA-Public Use
  Company Number: PHHO2009JP14259

PATIENT
  Sex: Male
  Weight: 60 kg

DRUGS (14)
  1. PLACEBO COMP-PLA+ [Suspect]
     Indication: PANCREATIC NEUROENDOCRINE TUMOUR
     Dosage: DOUBLE BLIND
     Route: 048
     Dates: start: 20080410
  2. RAD001 [Suspect]
     Indication: PANCREATIC NEUROENDOCRINE TUMOUR
     Dosage: 10 MG / DAY
     Route: 048
     Dates: start: 20080710, end: 20080820
  3. RAD001 [Suspect]
     Dosage: 10 MG / DAY
     Route: 048
     Dates: start: 20080828, end: 20081012
  4. RAD001 [Suspect]
     Dosage: 10 MG / DAY
     Route: 048
     Dates: start: 20081016, end: 20091107
  5. PARIET [Concomitant]
     Indication: GASTRINOMA
  6. SEVEN-E [Concomitant]
     Indication: PANCREATITIS CHRONIC
  7. PROMAC [Concomitant]
     Indication: GASTRINOMA
  8. HARNAL [Concomitant]
     Indication: BENIGN PROSTATIC HYPERPLASIA
  9. ALLEGRA [Concomitant]
     Indication: RASH
  10. GARASONE [Concomitant]
     Indication: RASH
  11. KERATINAMIN [Concomitant]
     Indication: DRY SKIN
  12. NERISONA [Concomitant]
     Indication: RASH
  13. SANDOSTATIN [Concomitant]
  14. DIOVAN [Concomitant]
     Indication: HYPERTENSION

REACTIONS (9)
  - ACUTE CORONARY SYNDROME [None]
  - ARTERIOSCLEROSIS CORONARY ARTERY [None]
  - BLOOD PRESSURE DECREASED [None]
  - CHEST DISCOMFORT [None]
  - DYSGEUSIA [None]
  - MALAISE [None]
  - PYREXIA [None]
  - VENTRICULAR HYPOKINESIA [None]
  - VOMITING [None]
